FAERS Safety Report 18163258 (Version 1)
Quarter: 2020Q3

REPORT INFORMATION
  Report Type: Spontaneous
  Country: IT (occurrence: IT)
  Receive Date: 20200818
  Receipt Date: 20200818
  Transmission Date: 20201103
  Serious: Yes (Hospitalization)
  Sender: FDA-Public Use
  Company Number: IT-CELGENEUS-ITA-20200803002

PATIENT
  Age: 84 Year
  Sex: Male

DRUGS (5)
  1. INSULIN [Concomitant]
     Active Substance: INSULIN NOS
     Indication: DIABETES MELLITUS
     Route: 058
  2. VIDAZA [Suspect]
     Active Substance: AZACITIDINE
     Indication: ACUTE MYELOID LEUKAEMIA
     Dosage: CYCLICAL
     Route: 042
     Dates: start: 20200518
  3. TRIATEC HCT 2,5 MG + 12,5 MG COMPRESSE [Concomitant]
     Indication: HYPERTENSION
     Route: 048
  4. LAMIVUDINE. [Concomitant]
     Active Substance: LAMIVUDINE
     Indication: HEPATITIS B
     Route: 048
  5. VENETOCLAX. [Suspect]
     Active Substance: VENETOCLAX
     Indication: ACUTE MYELOID LEUKAEMIA
     Dosage: CYCLICAL
     Route: 042
     Dates: start: 20200518

REACTIONS (5)
  - Pyrexia [Recovering/Resolving]
  - Blister [Recovering/Resolving]
  - Oropharyngeal pain [Recovering/Resolving]
  - Leukaemia [Recovering/Resolving]
  - Neutropenia [Recovering/Resolving]

NARRATIVE: CASE EVENT DATE: 20200621
